FAERS Safety Report 7344675-6 (Version None)
Quarter: 2011Q1

REPORT INFORMATION
  Report Type: 
  Country: None (occurrence: None)
  Receive Date: 20110310
  Receipt Date: 20110304
  Transmission Date: 20110831
  Serious: Yes (Death, Other)
  Sender: FDA-Public Use
  Company Number: ES-MERCK-1103ESP00016

PATIENT
  Age: 57 Year
  Sex: Male

DRUGS (1)
  1. CANCIDAS [Suspect]
     Indication: PYREXIA
     Route: 065

REACTIONS (2)
  - SEPSIS [None]
  - DEATH [None]
